FAERS Safety Report 5017659-0 (Version None)
Quarter: 2006Q2

REPORT INFORMATION
  Report Type: 
  Country: None (occurrence: None)
  Receive Date: 20060605
  Receipt Date: 20060523
  Transmission Date: 20061013
  Serious: Yes (Other)
  Sender: FDA-Public Use
  Company Number: BR-ROCHE-449403

PATIENT
  Age: 31 Year
  Sex: Female
  Weight: 70 kg

DRUGS (4)
  1. XENICAL [Suspect]
     Indication: WEIGHT CONTROL
     Route: 048
     Dates: start: 20060315, end: 20060315
  2. PARENZYME [Concomitant]
     Route: 048
     Dates: start: 20060315, end: 20060315
  3. LISADOR [Concomitant]
     Route: 048
     Dates: start: 20060315, end: 20060315
  4. ANADOR [Concomitant]
     Route: 048
     Dates: start: 20060315, end: 20060315

REACTIONS (4)
  - BLINDNESS TRANSIENT [None]
  - HYPOAESTHESIA [None]
  - HYPOAESTHESIA ORAL [None]
  - INFARCTION [None]
